FAERS Safety Report 8872672 (Version 1)
Quarter: 2012Q4

REPORT INFORMATION
  Report Type: 
  Country: US (occurrence: US)
  Receive Date: 20121030
  Receipt Date: 20121030
  Transmission Date: 20130627
  Serious: Yes (Other)
  Sender: FDA-Public Use
  Company Number: US-ROCHE-1141102

PATIENT
  Sex: Male
  Weight: 33 kg

DRUGS (2)
  1. NUTROPIN AQ [Suspect]
     Indication: OSTEOPETROSIS
     Dosage: 0.25 ml
     Route: 058
  2. NUTROPIN AQ [Suspect]
     Indication: RENAL TUBULAR ACIDOSIS

REACTIONS (1)
  - Lower limb fracture [Unknown]
